FAERS Safety Report 14280607 (Version 1)
Quarter: 2017Q4

REPORT INFORMATION
  Report Type: Report from Study
  Country: FR (occurrence: FR)
  Receive Date: 20171213
  Receipt Date: 20171213
  Transmission Date: 20180321
  Serious: Yes (Other)
  Sender: FDA-Public Use
  Company Number: FR-ROCHE-2038192

PATIENT

DRUGS (5)
  1. TOCILIZUMAB. [Suspect]
     Active Substance: TOCILIZUMAB
     Indication: RHEUMATOID ARTHRITIS
  2. TOCILIZUMAB. [Suspect]
     Active Substance: TOCILIZUMAB
     Indication: STILL^S DISEASE
     Route: 042
  3. TOCILIZUMAB. [Suspect]
     Active Substance: TOCILIZUMAB
     Indication: STILL^S DISEASE
     Route: 058
  4. TOCILIZUMAB. [Suspect]
     Active Substance: TOCILIZUMAB
     Indication: RHEUMATOID ARTHRITIS
  5. RITUXIMAB. [Suspect]
     Active Substance: RITUXIMAB
     Indication: RHEUMATOID ARTHRITIS
     Route: 065

REACTIONS (13)
  - Off label use [Unknown]
  - Tachycardia [Unknown]
  - Anaphylactic reaction [Unknown]
  - Treatment failure [Unknown]
  - Intentional product use issue [Unknown]
  - Malaise [Unknown]
  - Dyspnoea [Unknown]
  - Vasculitis necrotising [Unknown]
  - Hypotension [Unknown]
  - Rash pruritic [Unknown]
  - Flushing [Unknown]
  - Nausea [Unknown]
  - Erythema [Unknown]
